FAERS Safety Report 19583062 (Version 1)
Quarter: 2021Q3

REPORT INFORMATION
  Report Type: Report from Study
  Country: US (occurrence: US)
  Receive Date: 20210720
  Receipt Date: 20210720
  Transmission Date: 20211014
  Serious: Yes (Other)
  Sender: FDA-Public Use
  Company Number: US-BAYER-2021-178973

PATIENT
  Age: 65 Year
  Sex: Male

DRUGS (2)
  1. ASPIRIN. [Suspect]
     Active Substance: ASPIRIN
     Dosage: UNK
  2. HEPARIN [Suspect]
     Active Substance: HEPARIN SODIUM
     Dosage: UNK

REACTIONS (2)
  - Haemorrhage [None]
  - Labelled drug-drug interaction medication error [None]
